FAERS Safety Report 10149625 (Version 1)
Quarter: 2014Q2

REPORT INFORMATION
  Report Type: Spontaneous
  Country: US (occurrence: US)
  Receive Date: 20140502
  Receipt Date: 20140502
  Transmission Date: 20141212
  Serious: Yes (Death)
  Sender: FDA-Public Use
  Company Number: US-PFIZER INC-2014117498

PATIENT
  Age: 65 Year
  Sex: Male

DRUGS (1)
  1. XALKORI [Suspect]
     Indication: NON-SMALL CELL LUNG CANCER
     Dosage: 500 MG, DAILY
     Route: 048

REACTIONS (2)
  - Abdominal pain [Fatal]
  - Constipation [Fatal]
